FAERS Safety Report 7256883-3 (Version None)
Quarter: 2011Q1

REPORT INFORMATION
  Report Type: 
  Country: None (occurrence: None)
  Receive Date: 20110129
  Receipt Date: 20100621
  Transmission Date: 20110831
  Serious: No
  Sender: FDA-Public Use
  Company Number: US-ABBOTT-10P-163-0652605-00

PATIENT
  Age: 29 Year
  Sex: Male

DRUGS (6)
  1. HUMIRA [Suspect]
     Indication: COLITIS ULCERATIVE
  2. VITAMIN B [Concomitant]
     Indication: PRODUCT USED FOR UNKNOWN INDICATION
  3. PENTASA [Concomitant]
     Indication: COLITIS ULCERATIVE
  4. FISH OIL [Concomitant]
     Indication: PRODUCT USED FOR UNKNOWN INDICATION
  5. RISAQUAID [Concomitant]
     Indication: SOFT TISSUE DISORDER
  6. HUMIRA [Suspect]
     Indication: CROHN'S DISEASE
     Dates: start: 20100501

REACTIONS (1)
  - INJECTION SITE PAIN [None]
